FAERS Safety Report 6157705-4 (Version None)
Quarter: 2009Q2

REPORT INFORMATION
  Report Type: 
  Country: None (occurrence: None)
  Receive Date: 20090414
  Receipt Date: 20090330
  Transmission Date: 20091009
  Serious: Yes (Hospitalization)
  Sender: FDA-Public Use
  Company Number: 2009SP000867

PATIENT
  Age: 33 Year
  Sex: Female

DRUGS (16)
  1. XOPENEX [Suspect]
     Indication: ASTHMA
     Dosage: 90 UG; PRN; INHALATION
     Route: 055
     Dates: start: 20090301, end: 20090301
  2. FOLATE [Concomitant]
  3. LYMPHOSTAT-B [Concomitant]
  4. PLAQUENIL [Concomitant]
  5. FLONASE [Concomitant]
  6. EPINEPHRINE [Concomitant]
  7. ALLERGY MEDICATION [Concomitant]
  8. ZYFLO [Concomitant]
  9. LOTEMAX [Concomitant]
  10. RESTASIS [Concomitant]
  11. ASTELIN  /00884002/ [Concomitant]
  12. VENTOLIN [Concomitant]
  13. CALCIUM [Concomitant]
  14. FISH OIL [Concomitant]
  15. SINGULAIR [Concomitant]
  16. METHOTREXATE [Concomitant]

REACTIONS (9)
  - ANXIETY [None]
  - ASTHMA [None]
  - CHEST PAIN [None]
  - CONDITION AGGRAVATED [None]
  - MULTIPLE ALLERGIES [None]
  - NAUSEA [None]
  - PHARYNGEAL OEDEMA [None]
  - PNEUMONIA [None]
  - PRESYNCOPE [None]
